FAERS Safety Report 5262940-3 (Version None)
Quarter: 2007Q1

REPORT INFORMATION
  Report Type: 
  Country: None (occurrence: None)
  Receive Date: 20061219
  Receipt Date: 20060920
  Transmission Date: 20070707
  Serious: No
  Sender: FDA-Public Use
  Company Number: 2006US001899

PATIENT
  Age: 69 Year
  Sex: Female

DRUGS (1)
  1. VESICARE [Suspect]
     Indication: DRUG USE FOR UNKNOWN INDICATION
     Dosage: 10 MG
     Dates: end: 20060901

REACTIONS (3)
  - DRY MOUTH [None]
  - DYSPHONIA [None]
  - PHARYNGOLARYNGEAL PAIN [None]
